FAERS Safety Report 20505503 (Version 1)
Quarter: 2022Q1

REPORT INFORMATION
  Report Type: Report from Study
  Country: US (occurrence: US)
  Receive Date: 20220223
  Receipt Date: 20220223
  Transmission Date: 20220424
  Serious: Yes (Other)
  Sender: FDA-Public Use
  Company Number: US-JAZZ-2021-US-026967

PATIENT
  Sex: Female

DRUGS (6)
  1. XYREM [Suspect]
     Active Substance: SODIUM OXYBATE
     Indication: Narcolepsy
     Dosage: UNKNOWN DOSE AND FREQUENCY
     Route: 048
  2. LASIX [Concomitant]
     Active Substance: FUROSEMIDE
     Indication: Product used for unknown indication
     Dosage: 0000
     Dates: start: 20210924
  3. CEPHALEXIN [Interacting]
     Active Substance: CEPHALEXIN
     Indication: Product used for unknown indication
     Dosage: 0000
     Dates: start: 20200709
  4. PREVAGEN [APOAEQUORIN] [Concomitant]
     Indication: Product used for unknown indication
     Dosage: 0000
     Dates: start: 20200810
  5. CARVEDILOL [Concomitant]
     Active Substance: CARVEDILOL
     Indication: Product used for unknown indication
     Dosage: 0000
     Dates: start: 20210401
  6. SPIRONOLACTONE [Concomitant]
     Active Substance: SPIRONOLACTONE
     Indication: Product used for unknown indication
     Dosage: 0000
     Dates: start: 20210925

REACTIONS (8)
  - Neuropathy peripheral [Unknown]
  - Gait disturbance [Unknown]
  - Periorbital swelling [Recovering/Resolving]
  - Rhinorrhoea [Unknown]
  - Blood cholesterol abnormal [Unknown]
  - Affective disorder [Unknown]
  - Visual impairment [Not Recovered/Not Resolved]
  - Pain [Unknown]
